FAERS Safety Report 4821949-1 (Version None)
Quarter: 2005Q4

REPORT INFORMATION
  Report Type: 
  Country: None (occurrence: None)
  Receive Date: 20051103
  Receipt Date: 20051021
  Transmission Date: 20060501
  Serious: Yes (Other)
  Sender: FDA-Public Use
  Company Number: 12733

PATIENT
  Age: 6 Year
  Sex: Male

DRUGS (1)
  1. VINCRISTINE [Suspect]
     Indication: PRIMITIVE NEUROECTODERMAL TUMOUR

REACTIONS (1)
  - OPTIC NEUROPATHY [None]
